FAERS Safety Report 12611614 (Version 1)
Quarter: 2016Q3

REPORT INFORMATION
  Report Type: Not Available
  Country: CA (occurrence: CA)
  Receive Date: 20160801
  Receipt Date: 20160801
  Transmission Date: 20161109
  Serious: Yes (Death)
  Sender: FDA-Public Use
  Company Number: CA-PURDUE PHARMA-CAN-2016-0006924

PATIENT
  Age: 7 Year
  Sex: Male
  Weight: 30 kg

DRUGS (1)
  1. BIPHENTIN 15 MG CAPSULE [Suspect]
     Active Substance: METHYLPHENIDATE HYDROCHLORIDE
     Indication: ATTENTION DEFICIT/HYPERACTIVITY DISORDER
     Dosage: 15 MG, DAILY
     Route: 048

REACTIONS (7)
  - Cardio-respiratory arrest [Fatal]
  - Subarachnoid haemorrhage [Fatal]
  - Intracranial aneurysm [Fatal]
  - Intraventricular haemorrhage [Fatal]
  - Haemodynamic instability [Fatal]
  - Loss of consciousness [Fatal]
  - Headache [Fatal]
